FAERS Safety Report 7486823-3 (Version None)
Quarter: 2011Q2

REPORT INFORMATION
  Report Type: 
  Country: None (occurrence: None)
  Receive Date: 20110517
  Receipt Date: 20100617
  Transmission Date: 20111010
  Serious: Yes (Other)
  Sender: FDA-Public Use
  Company Number: DE-GENENTECH-318567

PATIENT
  Age: 82 Year
  Sex: Female

DRUGS (2)
  1. ANTIBIOTICS NOS [Suspect]
  2. LUCENTIS [Suspect]
     Indication: MACULAR DEGENERATION
     Dosage: UNK
     Route: 031

REACTIONS (7)
  - MALAISE [None]
  - VISION BLURRED [None]
  - EYE PRURITUS [None]
  - GANGRENE [None]
  - VISUAL ACUITY REDUCED [None]
  - MYDRIASIS [None]
  - VISUAL IMPAIRMENT [None]
